FAERS Safety Report 8320199 (Version 2)
Quarter: 2012Q4

REPORT INFORMATION
  Report Type: 
  Country: FR (occurrence: FR)
  Receive Date: 20120103
  Receipt Date: 20121015
  Transmission Date: 20130627
  Serious: Yes (Hospitalization)
  Sender: FDA-Public Use
  Company Number: FR-ASTRAZENECA-2011SE78229

PATIENT
  Age: 45 Year
  Sex: Female

DRUGS (3)
  1. MOPRAL [Suspect]
     Indication: PROPHYLAXIS AGAINST GASTROINTESTINAL ULCER
     Route: 048
     Dates: start: 201110, end: 20111026
  2. VOLTARENE [Suspect]
     Indication: BACK PAIN
     Route: 048
     Dates: start: 20111009
  3. VOLTARENE [Suspect]
     Indication: BACK PAIN
     Route: 048
     Dates: start: 201110, end: 20111026

REACTIONS (1)
  - Drug reaction with eosinophilia and systemic symptoms [Recovered/Resolved]
